FAERS Safety Report 9790827 (Version 2)
Quarter: 2014Q1

REPORT INFORMATION
  Report Type: Report from Study
  Country: JP (occurrence: JP)
  Receive Date: 20131231
  Receipt Date: 20140203
  Transmission Date: 20141002
  Serious: Yes (Hospitalization, Other)
  Sender: FDA-Public Use
  Company Number: JP-TAKEDA-2013TJP004350

PATIENT
  Age: 68 Year
  Sex: Female

DRUGS (11)
  1. LANSOPRAZOLE [Suspect]
     Indication: PROPHYLAXIS AGAINST GASTROINTESTINAL ULCER
     Dosage: 15 MG, QD
     Route: 048
     Dates: start: 20110715
  2. CELECOX [Suspect]
     Indication: RHEUMATOID ARTHRITIS
     Dosage: 200 MG, 1 DAYS
     Route: 048
     Dates: start: 20110627, end: 20111217
  3. RHEUMATREX /00113801/ [Suspect]
     Indication: RHEUMATOID ARTHRITIS
     Dosage: UNK UNK, 1/WEEK
     Route: 048
     Dates: start: 20111008, end: 20120402
  4. RHEUMATREX /00113801/ [Suspect]
     Dosage: UNK UNK, 1/WEEK
     Route: 048
     Dates: start: 20120403
  5. ELCITONIN [Concomitant]
     Dosage: 20 IU, 1 DAY
     Route: 042
  6. MOHRUS TAPE [Concomitant]
     Indication: RHEUMATOID ARTHRITIS
     Dosage: 20 MG, 1 DAYS
     Route: 062
     Dates: end: 20120217
  7. MOHRUS TAPE [Concomitant]
     Dosage: 20 MG, 1 DAYS
     Route: 062
     Dates: start: 20120428
  8. EDIROL(ELDECALCITOL) [Concomitant]
     Dosage: 0.75 ?G, 1 DAYS
     Route: 048
  9. FOLIAMIN [Concomitant]
     Indication: RHEUMATOID ARTHRITIS
     Dosage: UNK, 1/WEEK
     Route: 048
     Dates: start: 20111008
  10. LOXONIN PAP [Concomitant]
     Indication: RHEUMATOID ARTHRITIS
     Dosage: 100 MG, 1 DAY
     Route: 062
     Dates: start: 20120218, end: 20120427
  11. VIVIANT [Concomitant]
     Indication: OSTEOPOROSIS
     Dosage: 20 MG, 1 DAYS
     Route: 048
     Dates: start: 20120606

REACTIONS (4)
  - Colon cancer [Recovered/Resolved]
  - Periarthritis [Recovering/Resolving]
  - Face oedema [Recovered/Resolved]
  - Cystitis [Recovering/Resolving]
